FAERS Safety Report 7586571-5 (Version None)
Quarter: 2011Q3

REPORT INFORMATION
  Report Type: 
  Country: None (occurrence: None)
  Receive Date: 20110701
  Receipt Date: 20110629
  Transmission Date: 20111222
  Serious: No
  Sender: FDA-Public Use
  Company Number: US-TEVA-288593USA

PATIENT
  Sex: Female

DRUGS (10)
  1. OXCARBAZEPINE [Concomitant]
  2. COPAXONE [Suspect]
     Indication: MULTIPLE SCLEROSIS
     Route: 058
     Dates: start: 20110104
  3. SERTRALINE HYDROCHLORIDE [Concomitant]
  4. ESTRADIOL [Concomitant]
  5. FENOFIBRATE [Concomitant]
  6. ESOMEPRAZOLE MAGNESIUM [Concomitant]
  7. METOPROLOL TARTRATE [Concomitant]
  8. TRAZODONE HCL [Concomitant]
  9. TIZANIDINE HCL [Concomitant]
  10. SIMVASTATIN [Concomitant]

REACTIONS (3)
  - DYSPNOEA [None]
  - CHEST PAIN [None]
  - CHEST DISCOMFORT [None]
